FAERS Safety Report 8120772-2 (Version None)
Quarter: 2012Q1

REPORT INFORMATION
  Report Type: 
  Country: None (occurrence: None)
  Receive Date: 20120207
  Receipt Date: 20120203
  Transmission Date: 20120608
  Serious: Yes (Life-Threatening, Other)
  Sender: FDA-Public Use
  Company Number: US-ASTRAZENECA-2011SE50463

PATIENT
  Age: 59 Year
  Sex: Female

DRUGS (5)
  1. INSULIN [Concomitant]
  2. TOPROL-XL [Suspect]
     Route: 048
  3. CATAPRES [Concomitant]
  4. TOPROL-XL [Suspect]
     Route: 048
  5. CYMBALTA [Concomitant]

REACTIONS (10)
  - HAEMOPHILUS BACTERAEMIA [None]
  - HERPES SIMPLEX [None]
  - RESPIRATORY FAILURE [None]
  - ORAL CANDIDIASIS [None]
  - ASTHENIA [None]
  - COMA [None]
  - MENINGITIS BACTERIAL [None]
  - MENINGITIS HAEMOPHILUS [None]
  - ANAEMIA [None]
  - NEUROPATHY PERIPHERAL [None]
